FAERS Safety Report 16032369 (Version 2)
Quarter: 2019Q1

REPORT INFORMATION
  Report Type: Spontaneous
  Country: DE (occurrence: DE)
  Receive Date: 20190304
  Receipt Date: 20190319
  Transmission Date: 20190418
  Serious: Yes (Other)
  Sender: FDA-Public Use
  Company Number: DE-AMGEN-DEUSP2019016077

PATIENT
  Age: 42 Year
  Sex: Male
  Weight: 120 kg

DRUGS (1)
  1. AMGEVITA [Suspect]
     Active Substance: ADALIMUMAB
     Indication: PSORIASIS
     Dosage: 40 MG, Q2WK
     Route: 058
     Dates: start: 20181205

REACTIONS (4)
  - Skin exfoliation [Not Recovered/Not Resolved]
  - Erythema [Not Recovered/Not Resolved]
  - Skin disorder [Unknown]
  - Rash pustular [Not Recovered/Not Resolved]

NARRATIVE: CASE EVENT DATE: 20190103
